FAERS Safety Report 23403864 (Version 2)
Quarter: 2024Q4

REPORT INFORMATION
  Report Type: Spontaneous
  Country: AT (occurrence: AT)
  Receive Date: 20240116
  Receipt Date: 20241030
  Transmission Date: 20250115
  Serious: Yes (Other)
  Sender: CELLTRION
  Company Number: AT-CELLTRION INC.-2024AT000642

PATIENT

DRUGS (5)
  1. BEVACIZUMAB [Suspect]
     Active Substance: BEVACIZUMAB
     Indication: Cervix carcinoma recurrent
     Dosage: 15 MILLIGRAM/KILOGRAM, 3 TIMES A WEEK
  2. PEMBROLIZUMAB [Suspect]
     Active Substance: PEMBROLIZUMAB
     Indication: Cervix carcinoma recurrent
     Dosage: 200 MG, EVERY 3 WEEKS (200 MILLIGRAM, Q3W)
  3. PEMBROLIZUMAB [Suspect]
     Active Substance: PEMBROLIZUMAB
     Dosage: 400 MG, EVERY 6 WEEKS (400 MILLIGRAM, EVERY 6 WEEKS)
  4. CARBOPLATIN [Suspect]
     Active Substance: CARBOPLATIN
     Indication: Cervix carcinoma recurrent
     Dosage: AREA UNDER THE CURVE (AUC) 5; 6 CYCLES
  5. PACLITAXEL [Suspect]
     Active Substance: PACLITAXEL
     Indication: Cervix carcinoma recurrent
     Dosage: 175 MILLIGRAM PER MILLILITRE

REACTIONS (6)
  - Immune-mediated hypophysitis [Unknown]
  - Leukopenia [Unknown]
  - Thrombocytopenia [Unknown]
  - Neutropenia [Unknown]
  - Diarrhoea [Recovered/Resolved]
  - Intentional product use issue [Unknown]
